FAERS Safety Report 10956543 (Version 2)
Quarter: 2015Q3

REPORT INFORMATION
  Report Type: Spontaneous
  Country: NL (occurrence: NL)
  Receive Date: 20150326
  Receipt Date: 20150709
  Transmission Date: 20151125
  Serious: Yes (Other)
  Sender: FDA-Public Use
  Company Number: NL-TEVA-550369ISR

PATIENT
  Age: 51 Year
  Sex: Male
  Weight: 84 kg

DRUGS (1)
  1. IBUPROFEN TABLET 400MG [Suspect]
     Active Substance: IBUPROFEN
     Indication: MIGRAINE
     Dosage: 1600 MILLIGRAM DAILY; 4 TIMES A DAY 1 PIECE (S)
     Route: 048
     Dates: start: 20150228, end: 20150303

REACTIONS (1)
  - Haemorrhage [Recovered/Resolved]

NARRATIVE: CASE EVENT DATE: 20150228
